FAERS Safety Report 18378440 (Version 1)
Quarter: 2020Q4

REPORT INFORMATION
  Report Type: Spontaneous
  Country: US (occurrence: US)
  Receive Date: 20201013
  Receipt Date: 20201013
  Transmission Date: 20210114
  Serious: No
  Sender: FDA-Public Use
  Company Number: US-MYLANLABS-2020M1082337

PATIENT
  Sex: Female
  Weight: 77 kg

DRUGS (1)
  1. ESTRADIOL VAGINAL CREAM USP [Suspect]
     Active Substance: ESTRADIOL
     Indication: SEXUAL DYSFUNCTION
     Dosage: 0.5 GRAM, BIWEEKLY (TWICE A WEEK)
     Route: 067

REACTIONS (4)
  - Incorrect dose administered by device [Not Recovered/Not Resolved]
  - Device difficult to use [Not Recovered/Not Resolved]
  - Product quality issue [Not Recovered/Not Resolved]
  - Off label use [Unknown]
